FAERS Safety Report 22977207 (Version 2)
Quarter: 2023Q4

REPORT INFORMATION
  Report Type: Spontaneous
  Country: US (occurrence: None)
  Receive Date: 20230925
  Receipt Date: 20231122
  Transmission Date: 20240110
  Serious: No
  Sender: FDA-Public Use
  Company Number: 2023A215755

PATIENT

DRUGS (1)
  1. BREZTRI [Suspect]
     Active Substance: BUDESONIDE\FORMOTEROL\GLYCOPYRROLATE
     Route: 055

REACTIONS (6)
  - Vision blurred [Unknown]
  - Intentional product misuse [Unknown]
  - Product dose omission issue [Unknown]
  - Drug ineffective [Unknown]
  - Wrong technique in device usage process [Unknown]
  - Device delivery system issue [Unknown]
